FAERS Safety Report 12336509 (Version 7)
Quarter: 2017Q1

REPORT INFORMATION
  Report Type: Report from Study
  Country: US (occurrence: US)
  Receive Date: 20160505
  Receipt Date: 20170208
  Transmission Date: 20170428
  Serious: Yes (Other)
  Sender: FDA-Public Use
  Company Number: US-JNJFOC-20160421999

PATIENT
  Age: 78 Year
  Sex: Female

DRUGS (17)
  1. VITAMINE C [Concomitant]
     Active Substance: ASCORBIC ACID
  2. IMBRUVICA [Suspect]
     Active Substance: IBRUTINIB
     Indication: MONOCLONAL GAMMOPATHY
     Route: 048
     Dates: start: 2016, end: 2016
  3. IMBRUVICA [Suspect]
     Active Substance: IBRUTINIB
     Indication: MONOCLONAL GAMMOPATHY
     Route: 048
     Dates: start: 20150829, end: 20160409
  4. WAL PROFEN COLD AND SINUS [Concomitant]
     Active Substance: IBUPROFEN\PSEUDOEPHEDRINE HYDROCHLORIDE
  5. SPIRIVA [Concomitant]
     Active Substance: TIOTROPIUM BROMIDE MONOHYDRATE
  6. IMBRUVICA [Suspect]
     Active Substance: IBRUTINIB
     Indication: MONOCLONAL GAMMOPATHY
     Route: 048
     Dates: start: 20161213
  7. VITAMIN D [Concomitant]
     Active Substance: CHOLECALCIFEROL
  8. IMBRUVICA [Suspect]
     Active Substance: IBRUTINIB
     Indication: MONOCLONAL GAMMOPATHY
     Route: 048
     Dates: start: 201610
  9. VITAMINA B12 [Concomitant]
  10. IMBRUVICA [Suspect]
     Active Substance: IBRUTINIB
     Indication: PARAPROTEINAEMIA
     Route: 048
     Dates: start: 20150829, end: 20160409
  11. IMBRUVICA [Suspect]
     Active Substance: IBRUTINIB
     Indication: PARAPROTEINAEMIA
     Route: 048
     Dates: start: 2016, end: 2016
  12. PANTOPRAZOLE [Concomitant]
     Active Substance: PANTOPRAZOLE SODIUM
  13. IMBRUVICA [Suspect]
     Active Substance: IBRUTINIB
     Indication: PARAPROTEINAEMIA
     Route: 048
     Dates: start: 20161213
  14. VITAMIN D3 [Concomitant]
     Active Substance: CHOLECALCIFEROL
  15. ASPIRIN. [Concomitant]
     Active Substance: ASPIRIN
  16. IMBRUVICA [Suspect]
     Active Substance: IBRUTINIB
     Indication: PARAPROTEINAEMIA
     Route: 048
     Dates: start: 201610
  17. SERTRALINE [Concomitant]
     Active Substance: SERTRALINE HYDROCHLORIDE

REACTIONS (16)
  - Uterine dilation and curettage [Unknown]
  - Tooth extraction [Unknown]
  - Haemorrhage [Unknown]
  - Influenza like illness [Unknown]
  - Pain in extremity [Unknown]
  - Vein disorder [Unknown]
  - Off label use [Not Recovered/Not Resolved]
  - Procedural pain [Not Recovered/Not Resolved]
  - Post procedural swelling [Not Recovered/Not Resolved]
  - Product use issue [Not Recovered/Not Resolved]
  - Burning sensation [Recovered/Resolved]
  - Fatigue [Unknown]
  - Cough [Unknown]
  - Uterine polyp [Unknown]
  - Localised infection [Unknown]
  - Nasopharyngitis [Unknown]

NARRATIVE: CASE EVENT DATE: 20150829
